FAERS Safety Report 7401866-3 (Version None)
Quarter: 2011Q2

REPORT INFORMATION
  Report Type: 
  Country: None (occurrence: None)
  Receive Date: 20110408
  Receipt Date: 20110325
  Transmission Date: 20111010
  Serious: Yes (Other)
  Sender: FDA-Public Use
  Company Number: US-CELGENEUS-163-21880-11031259

PATIENT
  Sex: Male
  Weight: 88.53 kg

DRUGS (5)
  1. DIOVAN [Concomitant]
     Route: 065
  2. FLOMAX [Concomitant]
     Route: 065
  3. ASPIRIN [Concomitant]
     Route: 065
  4. CEFUROXIME [Concomitant]
     Route: 065
  5. REVLIMID [Suspect]
     Indication: MULTIPLE MYELOMA
     Dosage: 25 MILLIGRAM
     Route: 048
     Dates: start: 20101221

REACTIONS (1)
  - PROSTATIC SPECIFIC ANTIGEN INCREASED [None]
